FAERS Safety Report 9463137 (Version 2)
Quarter: 2013Q3

REPORT INFORMATION
  Report Type: Spontaneous
  Country: NZ (occurrence: NZ)
  Receive Date: 20130816
  Receipt Date: 20130902
  Transmission Date: 20140515
  Serious: Yes (Hospitalization, Other)
  Sender: FDA-Public Use
  Company Number: NZ-009507513-1308NZL007015

PATIENT
  Age: 84 Year
  Sex: Female

DRUGS (1)
  1. FOSAMAX PLUS [Suspect]
     Dosage: UNK
     Route: 048

REACTIONS (5)
  - Femur fracture [Unknown]
  - Medical device implantation [Unknown]
  - Surgery [Unknown]
  - Bursitis [Unknown]
  - Pain in extremity [Unknown]
